FAERS Safety Report 11018613 (Version 2)
Quarter: 2015Q2

REPORT INFORMATION
  Report Type: Spontaneous
  Country: US (occurrence: US)
  Receive Date: 20150412
  Receipt Date: 20150524
  Transmission Date: 20150821
  Serious: Yes (Death)
  Sender: FDA-Public Use
  Company Number: US-JNJFOC-20130610099

PATIENT

DRUGS (12)
  1. PLATELET [Concomitant]
     Route: 065
  2. PEGFILGRASTIM [Concomitant]
     Active Substance: PEGFILGRASTIM
     Route: 058
  3. RITUXIMAB [Suspect]
     Active Substance: RITUXIMAB
     Indication: ACUTE LYMPHOCYTIC LEUKAEMIA
     Dosage: CYCLES 1-4 DAYS 1, 11 IF CD20 LESS THAN OR EQUALS TO 20%
     Route: 042
  4. RASBURICASE [Concomitant]
     Active Substance: RASBURICASE
     Route: 065
  5. GRANULOCYTE COLONY STIMULATING FACTOR [Concomitant]
     Active Substance: GRANULOCYTE COLONY-STIMULATING FACTOR NOS
     Dosage: DAILY UNTIL ANC } 10 9/ L
     Route: 058
  6. DOXORUBICIN [Suspect]
     Active Substance: DOXORUBICIN
     Indication: ACUTE LYMPHOCYTIC LEUKAEMIA
     Dosage: CYCLES 1, 3, 5, 7 OR CYCLES 1, 4, 6,8 CONTINUOUS INFUSION 2-24 HRS DAY 4
     Route: 042
  7. DEXAMETHASONE. [Suspect]
     Active Substance: DEXAMETHASONE
     Indication: ACUTE LYMPHOCYTIC LEUKAEMIA
     Dosage: CYCLES 1, 3, 5, 7 OR CYCLES 1, 4, 6, 8??ORAL, DAYS 1-4, 11-14
     Route: 042
  8. L-ASPARAGINASE [Concomitant]
     Active Substance: ASPARAGINASE
     Dosage: 20,000 UNITS DAY 2 INTO 4 WEEKLY
     Route: 042
  9. VINCRISTINE [Suspect]
     Active Substance: VINCRISTINE
     Indication: ACUTE LYMPHOCYTIC LEUKAEMIA
     Dosage: CYCLES 1, 3, 5, 7 OR CYCLES 1, 4, 6, 8??DAYS 1, 11
     Route: 042
  10. CYCLOPHOSPHAMIDE. [Suspect]
     Active Substance: CYCLOPHOSPHAMIDE
     Indication: ACUTE LYMPHOCYTIC LEUKAEMIA
     Dosage: CYCLES 1, 3, 5, 7 OR CYCLES 1, 4, 6, 8, OVER??2 HRS EVERY 12 HRS, 6 DOSES ON DAYS 1-3
     Route: 042
  11. ALLOPURINOL. [Concomitant]
     Active Substance: ALLOPURINOL
     Route: 065
  12. ACETAZOLAMIDE. [Concomitant]
     Active Substance: ACETAZOLAMIDE
     Route: 065

REACTIONS (2)
  - Product use issue [Unknown]
  - Acute lymphocytic leukaemia recurrent [Fatal]
